FAERS Safety Report 10675638 (Version 2)
Quarter: 2015Q1

REPORT INFORMATION
  Report Type: Spontaneous
  Country: GB (occurrence: GB)
  Receive Date: 20141224
  Receipt Date: 20150202
  Transmission Date: 20150720
  Serious: Yes (Other)
  Sender: FDA-Public Use
  Company Number: GB-WATSON-2014-27538

PATIENT
  Sex: Female

DRUGS (2)
  1. MYCOPHENOLATE MOFETIL (UNKNOWN) [Suspect]
     Active Substance: MYCOPHENOLATE MOFETIL
     Indication: CHRONIC SPONTANEOUS URTICARIA
     Dosage: 1.5 G, DAILY
     Route: 065
  2. CYCLOSPORINE (UNKNOWN) [Suspect]
     Active Substance: CYCLOSPORINE
     Indication: CHRONIC SPONTANEOUS URTICARIA
     Dosage: 150 MG, DAILY
     Route: 065

REACTIONS (2)
  - Anaphylactic reaction [Unknown]
  - Epilepsy [Unknown]
